FAERS Safety Report 8806963 (Version 4)
Quarter: 2013Q3

REPORT INFORMATION
  Report Type: Report from Study
  Country: JP (occurrence: JP)
  Receive Date: 20120925
  Receipt Date: 20130918
  Transmission Date: 20140515
  Serious: Yes (Other)
  Sender: FDA-Public Use
  Company Number: JP-VERTEX PHARMACEUTICAL INC.-2012-021631

PATIENT
  Age: 51 Year
  Sex: Female

DRUGS (5)
  1. VX-950 (TELAPREVIR) [Suspect]
     Indication: CHRONIC HEPATITIS C
     Dosage: 2250 MG, QD
     Route: 048
     Dates: start: 20120407, end: 20130623
  2. RIBAVIRIN [Suspect]
     Indication: CHRONIC HEPATITIS C
     Dosage: 800 MG, QD
     Route: 048
     Dates: start: 20120407
  3. PEGINTERFERON ALFA-2B [Suspect]
     Indication: CHRONIC HEPATITIS C
     Dosage: 1.5 ?G/KG, QW
     Route: 058
     Dates: start: 20120407
  4. CALONAL [Concomitant]
     Dosage: 300 MG, QD/PRN
     Route: 048
     Dates: start: 20120609, end: 20120616
  5. MIGSIS [Concomitant]
     Dosage: UNK, PRN
     Route: 048
     Dates: start: 20120609

REACTIONS (1)
  - White blood cell count decreased [Not Recovered/Not Resolved]
